FAERS Safety Report 5736902-3 (Version None)
Quarter: 2008Q2

REPORT INFORMATION
  Report Type: 
  Country: None (occurrence: None)
  Receive Date: 20080509
  Receipt Date: 20080423
  Transmission Date: 20081010
  Serious: Yes (Other)
  Sender: FDA-Public Use
  Company Number: S08-GER-01644-01

PATIENT
  Sex: Female

DRUGS (2)
  1. ESCITALOPRAM [Suspect]
  2. ANTIALLERGICS [Concomitant]

REACTIONS (3)
  - BONE MARROW DISORDER [None]
  - LEUKOPENIA [None]
  - THROMBOCYTOPENIA [None]
